FAERS Safety Report 23599704 (Version 1)
Quarter: 2024Q1

REPORT INFORMATION
  Report Type: Spontaneous
  Country: PL (occurrence: PL)
  Receive Date: 20240306
  Receipt Date: 20240306
  Transmission Date: 20240410
  Serious: Yes (Other)
  Sender: FDA-Public Use
  Company Number: PL-OPELLA-2024OHG006749

PATIENT
  Age: 25 Year
  Sex: Female

DRUGS (1)
  1. XYZAL [Suspect]
     Active Substance: LEVOCETIRIZINE DIHYDROCHLORIDE
     Indication: Hypersensitivity
     Route: 065

REACTIONS (6)
  - Suicidal ideation [Unknown]
  - Depression [Unknown]
  - Headache [Unknown]
  - Somnolence [Unknown]
  - Fatigue [Unknown]
  - Product use in unapproved indication [Unknown]
